FAERS Safety Report 6763534-0 (Version None)
Quarter: 2010Q2

REPORT INFORMATION
  Report Type: 
  Country: None (occurrence: None)
  Receive Date: 20100610
  Receipt Date: 20100527
  Transmission Date: 20101027
  Serious: Yes (Hospitalization, Other)
  Sender: FDA-Public Use
  Company Number: PHHY2009JP39037

PATIENT
  Sex: Male
  Weight: 79 kg

DRUGS (7)
  1. GLEEVEC [Suspect]
     Indication: CHRONIC MYELOID LEUKAEMIA
     Dosage: 400 MG DAILY
     Route: 048
     Dates: start: 20090527, end: 20090819
  2. GLEEVEC [Suspect]
     Dosage: 200 MG DAILY
     Route: 048
     Dates: start: 20090820, end: 20090906
  3. CHAMPIX [Concomitant]
     Indication: EX-TOBACCO USER
     Dosage: 0.5 MG
     Route: 048
     Dates: start: 20090905, end: 20090906
  4. ADALAT CC [Concomitant]
     Indication: HYPERTENSION
     Dosage: 20 MG
     Route: 048
     Dates: start: 20090521
  5. BARACLUDE [Concomitant]
     Indication: HEPATITIS B
     Dosage: 0.5 UG
     Route: 048
     Dates: start: 20090521
  6. EPL [Concomitant]
     Indication: HEPATITIS B
     Dosage: 1500 MG
     Route: 048
     Dates: start: 20090521
  7. MUCOSTA [Concomitant]
     Indication: GASTRITIS
     Dosage: 300 MG
     Route: 048
     Dates: start: 20090820

REACTIONS (11)
  - BLOOD LACTATE DEHYDROGENASE INCREASED [None]
  - DYSPNOEA [None]
  - HAEMATOCRIT DECREASED [None]
  - HEPATIC STEATOSIS [None]
  - HEPATITIS B [None]
  - HYPERLIPIDAEMIA [None]
  - HYPERTENSION [None]
  - INTERSTITIAL LUNG DISEASE [None]
  - OXYGEN SATURATION DECREASED [None]
  - RED BLOOD CELL COUNT DECREASED [None]
  - URTICARIA [None]
